FAERS Safety Report 14738862 (Version 4)
Quarter: 2018Q4

REPORT INFORMATION
  Report Type: Spontaneous
  Country: US (occurrence: US)
  Receive Date: 20180409
  Receipt Date: 20181206
  Transmission Date: 20190204
  Serious: Yes (Hospitalization)
  Sender: FDA-Public Use
  Company Number: US-BIOGEN-2018BI00550752

PATIENT
  Sex: Female

DRUGS (1)
  1. TYSABRI [Suspect]
     Active Substance: NATALIZUMAB
     Indication: MULTIPLE SCLEROSIS
     Route: 042
     Dates: start: 20170612, end: 20180212

REACTIONS (6)
  - Adult failure to thrive [Unknown]
  - Malnutrition [Unknown]
  - Asthenia [Unknown]
  - Insomnia [Unknown]
  - Diarrhoea [Unknown]
  - Dyspnoea [Unknown]
